FAERS Safety Report 9729609 (Version 1)
Quarter: 2013Q4

REPORT INFORMATION
  Report Type: Spontaneous
  Country: GB (occurrence: None)
  Receive Date: 20131203
  Receipt Date: 20131203
  Transmission Date: 20140711
  Serious: Yes (Other)
  Sender: FDA-Public Use
  Company Number: AUR-APL-2013-09868

PATIENT
  Age: 37 Year
  Sex: Female

DRUGS (5)
  1. SUMATRIPTAN [Suspect]
     Indication: MIGRAINE
     Route: 048
     Dates: start: 20131105, end: 20131112
  2. CO-CODAMOL (PANADEINE CO) [Concomitant]
  3. DOMPERIDONE (DOMPERIDONE) [Concomitant]
  4. NAPROXEN (NAPROXEN) [Concomitant]
  5. OMEPRAZOLE (OMEPRAZOLE) [Concomitant]

REACTIONS (2)
  - Dizziness [None]
  - Loss of consciousness [None]
